FAERS Safety Report 5474073-1 (Version None)
Quarter: 2007Q4

REPORT INFORMATION
  Report Type: 
  Country: None (occurrence: None)
  Receive Date: 20071002
  Receipt Date: 20070921
  Transmission Date: 20080405
  Serious: Yes (Hospitalization, Other)
  Sender: FDA-Public Use
  Company Number: PHBS2007BR15851

PATIENT
  Sex: Male
  Weight: 89 kg

DRUGS (10)
  1. LIORESAL [Suspect]
     Indication: MULTIPLE SCLEROSIS
     Dosage: 8 - 10 DF /DAY
     Route: 048
  2. BACLOFEN [Suspect]
  3. NEURONTIN [Concomitant]
     Indication: MULTIPLE SCLEROSIS
     Dosage: 400 MG, TID
     Route: 048
  4. AMPLICTIL [Concomitant]
     Indication: MULTIPLE SCLEROSIS
     Dosage: 8 GTT, Q4H
     Route: 048
  5. METADON [Concomitant]
     Indication: MULTIPLE SCLEROSIS
     Dosage: 10 MG, BID
     Route: 048
  6. DIAZEPAM [Concomitant]
     Indication: MULTIPLE SCLEROSIS
     Dosage: 10 MG, BID
     Route: 048
  7. AMITRIPTYLINE HCL [Concomitant]
     Indication: DEPRESSION
     Dosage: 75 MG, TID
     Route: 048
  8. RIVOTRIL [Concomitant]
     Indication: MULTIPLE SCLEROSIS
     Dosage: 2 MG, QID
     Route: 048
  9. DORMONID [Concomitant]
     Indication: MUSCLE RELAXANT THERAPY
     Dosage: 15 MG, BID
     Route: 048
  10. DEPAKENE [Concomitant]
     Indication: MULTIPLE SCLEROSIS
     Dosage: 250 MG, TID

REACTIONS (8)
  - DIPLOPIA [None]
  - ELECTRIC SHOCK [None]
  - FATIGUE [None]
  - MEDICAL DEVICE IMPLANTATION [None]
  - MUSCLE SPASMS [None]
  - NERVOUS SYSTEM DISORDER [None]
  - PAIN IN EXTREMITY [None]
  - SPINAL CORD DISORDER [None]
